FAERS Safety Report 21701328 (Version 2)
Quarter: 2022Q4

REPORT INFORMATION
  Report Type: Report from Study
  Country: US (occurrence: None)
  Receive Date: 20221208
  Receipt Date: 20221213
  Transmission Date: 20230113
  Serious: Yes (Death)
  Sender: FDA-Public Use
  Company Number: US-ROCHE-3117044

PATIENT
  Age: 59 Year
  Sex: Male
  Weight: 99.1 kg

DRUGS (18)
  1. RO-7288820 [Suspect]
     Active Substance: RO-7288820
     Indication: Colorectal cancer metastatic
     Dosage: DOSE CONCENTRATION 50 MG/ML?START AND END DATE OF MOST RECENT DOSE OF STUDY DRUG PRIOR TO AE AND SAE
     Route: 042
     Dates: start: 20220607
  2. TOCILIZUMAB [Suspect]
     Active Substance: TOCILIZUMAB
     Indication: Colorectal cancer metastatic
     Dosage: START AND END DATE OF MOST RECENT DOSE OF STUDY DRUG PRIOR TO AE/SAE 09-JUN-2022
     Route: 042
     Dates: start: 20220609
  3. DILAUDID [Concomitant]
     Active Substance: HYDROMORPHONE HYDROCHLORIDE
     Indication: Back pain
     Route: 048
     Dates: start: 20220608, end: 20220610
  4. LIDODERM [Concomitant]
     Active Substance: LIDOCAINE
     Indication: Back pain
     Route: 062
     Dates: start: 20220608
  5. FLEXERIL [Concomitant]
     Active Substance: CYCLOBENZAPRINE HYDROCHLORIDE
     Indication: Back pain
     Route: 048
     Dates: start: 20220608, end: 20220610
  6. IMODIUM [Concomitant]
     Active Substance: LOPERAMIDE HYDROCHLORIDE
     Indication: Diarrhoea
     Route: 048
     Dates: start: 20220610
  7. LOMOTIL [Concomitant]
     Active Substance: ATROPINE SULFATE\DIPHENOXYLATE HYDROCHLORIDE
     Indication: Diarrhoea
     Route: 048
     Dates: start: 20220610
  8. SENOKOT [Concomitant]
     Active Substance: SENNOSIDES
     Indication: Constipation
     Route: 048
     Dates: start: 20220607, end: 20220607
  9. DEMEROL [Concomitant]
     Active Substance: MEPERIDINE HYDROCHLORIDE
     Indication: Chills
     Route: 042
     Dates: start: 20220609, end: 20220609
  10. SODIUM PHOSPHATES RECTAL [Concomitant]
     Indication: Hypophosphataemia
     Route: 042
     Dates: start: 20220609, end: 20220609
  11. MAGNESIUM SULFATE [Concomitant]
     Active Substance: MAGNESIUM SULFATE
     Indication: Hypomagnesaemia
     Route: 042
     Dates: start: 20220609, end: 20220609
  12. HYDROCORTISONE [Concomitant]
     Active Substance: HYDROCORTISONE
     Indication: Adrenal insufficiency
     Route: 048
     Dates: start: 20210408
  13. LEVOTHYROXINE [Concomitant]
     Active Substance: LEVOTHYROXINE
     Indication: Hypothyroidism
     Route: 048
     Dates: start: 20181112
  14. GABAPENTIN [Concomitant]
     Active Substance: GABAPENTIN
     Indication: Metastases to bone
     Route: 048
     Dates: start: 20220606
  15. LIOTHYRONINE [Concomitant]
     Active Substance: LIOTHYRONINE
     Indication: Hypothyroidism
     Route: 048
     Dates: start: 20170725
  16. ACETAMINOPHEN [Concomitant]
     Active Substance: ACETAMINOPHEN
     Indication: Metastases to bone
     Route: 048
     Dates: start: 20190108
  17. TRAMADOL [Concomitant]
     Active Substance: TRAMADOL
     Indication: Metastases to bone
     Route: 048
     Dates: start: 20190108
  18. TRAMADOL [Concomitant]
     Active Substance: TRAMADOL
     Indication: Back pain

REACTIONS (2)
  - Malignant neoplasm progression [Fatal]
  - Cytokine release syndrome [Recovered/Resolved]

NARRATIVE: CASE EVENT DATE: 20220608
